FAERS Safety Report 9556045 (Version 3)
Quarter: 2013Q4

REPORT INFORMATION
  Report Type: Spontaneous
  Country: FR (occurrence: None)
  Receive Date: 20130924
  Receipt Date: 20131115
  Transmission Date: 20140711
  Serious: Yes (Other)
  Sender: FDA-Public Use
  Company Number: 2013FR002508

PATIENT
  Age: 67 Year
  Sex: Male
  Weight: 90 kg

DRUGS (4)
  1. PONATINIB [Suspect]
     Indication: CHRONIC MYELOID LEUKAEMIA
     Route: 048
     Dates: start: 20110603, end: 20130712
  2. DEXERYL (GLYCEROL, PARRAFIN, LIQUID, WHITE SOFT PARRAFIN) [Concomitant]
  3. MOPRAL (OMEPRAZOLE) [Concomitant]
  4. TWYNSTA (AMLODIPINE BESILATE, TELMISARTAN) [Concomitant]

REACTIONS (7)
  - Transient ischaemic attack [None]
  - Blood triglycerides increased [None]
  - Blood cholesterol increased [None]
  - Xeroderma [None]
  - Ejection fraction decreased [None]
  - Hypertension [None]
  - Nuclear magnetic resonance imaging brain abnormal [None]
